FAERS Safety Report 6376472-2 (Version None)
Quarter: 2009Q3

REPORT INFORMATION
  Report Type: 
  Country: None (occurrence: None)
  Receive Date: 20090922
  Receipt Date: 20090922
  Transmission Date: 20100115
  Serious: Yes (Other)
  Sender: FDA-Public Use
  Company Number: None

PATIENT
  Age: 10 Year
  Sex: Female
  Weight: 36.2878 kg

DRUGS (1)
  1. AVANT HAND SANITIZER [Suspect]
     Indication: FEAR OF DISEASE

REACTIONS (2)
  - DIPLOPIA [None]
  - HEADACHE [None]
